FAERS Safety Report 4925151-4 (Version None)
Quarter: 2006Q1

REPORT INFORMATION
  Report Type: 
  Country: None (occurrence: None)
  Receive Date: 20060228
  Receipt Date: 20051207
  Transmission Date: 20060701
  Serious: No
  Sender: FDA-Public Use
  Company Number: US-GLAXOSMITHKLINE-A0584986A

PATIENT
  Age: 73 Year
  Sex: Male

DRUGS (15)
  1. AVODART [Suspect]
     Indication: BENIGN PROSTATIC HYPERPLASIA
     Dosage: .5MG PER DAY
     Route: 048
  2. CARDURA [Concomitant]
  3. AMIODARONE [Concomitant]
  4. LIPITOR [Concomitant]
  5. DIAVAN [Concomitant]
  6. NORVASC [Concomitant]
  7. INDAPAMIDE [Concomitant]
  8. ASPIRIN [Concomitant]
  9. DOXAZOSIN [Concomitant]
  10. NAPROXEN [Concomitant]
  11. KLOR-CON [Concomitant]
  12. PEPCID [Concomitant]
  13. ZINC [Concomitant]
  14. VITAMINS [Concomitant]
  15. VITAMIN E [Concomitant]

REACTIONS (7)
  - BREAST TENDERNESS [None]
  - DIZZINESS [None]
  - DRUG INEFFECTIVE [None]
  - EJACULATION FAILURE [None]
  - LIBIDO DECREASED [None]
  - RASH [None]
  - URINE FLOW DECREASED [None]
